FAERS Safety Report 17158994 (Version 1)
Quarter: 2019Q4

REPORT INFORMATION
  Report Type: Report from Study
  Country: US (occurrence: US)
  Receive Date: 20191216
  Receipt Date: 20191216
  Transmission Date: 20200122
  Serious: Yes (Death, Hospitalization)
  Sender: FDA-Public Use
  Company Number: US-BAYER-2019-161309

PATIENT
  Age: 43 Year
  Sex: Female

DRUGS (2)
  1. ADEMPAS [Suspect]
     Active Substance: RIOCIGUAT
     Indication: PULMONARY ARTERIAL HYPERTENSION
     Dosage: 0.5 MG, TID
     Route: 048
     Dates: start: 20190829
  2. ORENITRAM [Concomitant]
     Active Substance: TREPROSTINIL

REACTIONS (2)
  - Pulmonary hypertension [Fatal]
  - Hospitalisation [Unknown]

NARRATIVE: CASE EVENT DATE: 20191103
